FAERS Safety Report 18355560 (Version 2)
Quarter: 2020Q4

REPORT INFORMATION
  Report Type: Spontaneous
  Country: US (occurrence: US)
  Receive Date: 20201007
  Receipt Date: 20201109
  Transmission Date: 20210114
  Serious: No
  Sender: FDA-Public Use
  Company Number: US-BAYER-2020-213898

PATIENT
  Age: 46 Year
  Sex: Male

DRUGS (4)
  1. TRUBIOTICS WITH B-VITAMINS [Suspect]
     Active Substance: PROBIOTICS NOS\VITAMINS
     Indication: NUTRITIONAL SUPPLEMENTATION
     Dosage: 1 DF
     Route: 048
     Dates: start: 20200917, end: 20200926
  2. BACTRIM [Concomitant]
     Active Substance: SULFAMETHOXAZOLE\TRIMETHOPRIM
  3. CIPRO [Suspect]
     Active Substance: CIPROFLOXACIN HYDROCHLORIDE
     Indication: PENILE PAIN
     Dosage: UNK
     Dates: start: 20200502, end: 20200506
  4. TYLENOL [Concomitant]
     Active Substance: ACETAMINOPHEN

REACTIONS (10)
  - Chills [None]
  - Tremor [None]
  - Lip disorder [None]
  - Drug hypersensitivity [Unknown]
  - Acne pustular [Recovering/Resolving]
  - Body temperature decreased [None]
  - Product use in unapproved indication [None]
  - Cheilitis [Recovering/Resolving]
  - Acne [Recovering/Resolving]
  - Off label use [None]

NARRATIVE: CASE EVENT DATE: 20200502
